FAERS Safety Report 8328459-8 (Version None)
Quarter: 2012Q2

REPORT INFORMATION
  Report Type: 
  Country: None (occurrence: None)
  Receive Date: 20120502
  Receipt Date: 20120502
  Transmission Date: 20120825
  Serious: Yes (Life-Threatening)
  Sender: FDA-Public Use
  Company Number: None

PATIENT
  Age: 43 Year
  Sex: Female
  Weight: 123.37 kg

DRUGS (1)
  1. VICTOZA [Suspect]
     Indication: DIABETES MELLITUS
     Dosage: |DOSAGETEXT: FULL DOSE||STRENGTH: 18MG/3ML||FREQ: DAILY||ROUTE: SUBCUTANEOUS|
     Route: 058
     Dates: start: 20120115, end: 20120315

REACTIONS (6)
  - MUSCLE SPASMS [None]
  - PAIN [None]
  - DECREASED APPETITE [None]
  - NAUSEA [None]
  - DIZZINESS [None]
  - GAIT DISTURBANCE [None]
